FAERS Safety Report 5563676-1 (Version None)
Quarter: 2007Q4

REPORT INFORMATION
  Report Type: 
  Country: None (occurrence: None)
  Receive Date: 20071217
  Receipt Date: 20070731
  Transmission Date: 20080405
  Serious: No
  Sender: FDA-Public Use
  Company Number: US-ASTRAZENECA-2007UW18404

PATIENT
  Age: 68 Year
  Sex: Female
  Weight: 79.4 kg

DRUGS (18)
  1. CRESTOR [Suspect]
     Indication: BLOOD CHOLESTEROL
     Route: 048
     Dates: start: 20070701
  2. TOPROL-XL [Concomitant]
     Route: 048
  3. VOLTAREN [Concomitant]
  4. AMITRIPTLINE HCL [Concomitant]
  5. PREMARIN [Concomitant]
  6. BACLOFEN [Concomitant]
  7. LOTREL [Concomitant]
  8. ZYRTEC [Concomitant]
  9. FUROSEMIDE [Concomitant]
  10. ACTONEL [Concomitant]
  11. POTASSIUM CHLORIDE [Concomitant]
  12. GABAPENTIN [Concomitant]
  13. OMEPRAZOLE [Concomitant]
  14. VITAMIN E [Concomitant]
  15. M.V.I. [Concomitant]
  16. CALTRATE D [Concomitant]
  17. RANITIDINE HCL [Concomitant]
  18. DOCUSATE SODIUM [Concomitant]

REACTIONS (1)
  - PETECHIAE [None]
